FAERS Safety Report 6612692-7 (Version None)
Quarter: 2010Q1

REPORT INFORMATION
  Report Type: 
  Country: None (occurrence: None)
  Receive Date: 20100303
  Receipt Date: 20100223
  Transmission Date: 20100710
  Serious: Yes (Death, Other)
  Sender: FDA-Public Use
  Company Number: US-PFIZER INC-2003114994

PATIENT
  Age: 48 Year
  Sex: Male
  Weight: 40.82 kg

DRUGS (3)
  1. VFEND [Suspect]
     Indication: MENINGITIS CRYPTOCOCCAL
     Dosage: DAILY
     Route: 048
     Dates: start: 20031008, end: 20031123
  2. VFEND [Suspect]
     Indication: ASPERGILLOSIS
  3. ALL OTHER THERAPEUTIC PRODUCTS [Concomitant]

REACTIONS (7)
  - ABDOMINAL DISCOMFORT [None]
  - ASPERGILLOSIS [None]
  - BLINDNESS UNILATERAL [None]
  - DRUG ADMINISTRATION ERROR [None]
  - DRUG TOXICITY [None]
  - VISUAL FIELD DEFECT [None]
  - VISUAL IMPAIRMENT [None]
